FAERS Safety Report 7570143-2 (Version None)
Quarter: 2011Q2

REPORT INFORMATION
  Report Type: 
  Country: None (occurrence: None)
  Receive Date: 20110624
  Receipt Date: 20110610
  Transmission Date: 20111010
  Serious: Yes (Other)
  Sender: FDA-Public Use
  Company Number: IT-CELGENEUS-083-21880-10111999

PATIENT
  Sex: Male

DRUGS (6)
  1. LANSOPRAZOLE [Concomitant]
     Route: 048
     Dates: start: 20101001
  2. DEXAMETHASONE [Concomitant]
     Indication: MULTIPLE MYELOMA
     Route: 065
  3. ALLOPURINOL [Concomitant]
     Route: 048
     Dates: start: 20101001, end: 20101020
  4. REVLIMID [Suspect]
     Indication: MULTIPLE MYELOMA
     Dosage: 25 MILLIGRAM
     Route: 048
     Dates: start: 20101001, end: 20101020
  5. ASPIRIN [Concomitant]
     Route: 048
     Dates: start: 20101015, end: 20101029
  6. BACTRIM [Concomitant]
     Dosage: 160MG +800MG
     Route: 048
     Dates: start: 20101001, end: 20101020

REACTIONS (2)
  - ACUTE GRAFT VERSUS HOST DISEASE IN SKIN [None]
  - GENERALISED ERYTHEMA [None]
